FAERS Safety Report 20108673 (Version 1)
Quarter: 2021Q4

REPORT INFORMATION
  Report Type: Spontaneous
  Country: ES (occurrence: ES)
  Receive Date: 20211124
  Receipt Date: 20211124
  Transmission Date: 20220303
  Serious: Yes (Hospitalization)
  Sender: FDA-Public Use
  Company Number: None

PATIENT
  Age: 53 Year
  Sex: Male
  Weight: 112 kg

DRUGS (3)
  1. FUROSEMIDE [Suspect]
     Active Substance: FUROSEMIDE
     Indication: Ascites
     Dosage: 120 MILLIGRAM, QD, 80MG AT BREAKFAST AND 40MG AT LUNCH
     Route: 048
     Dates: start: 20210802, end: 20210819
  2. AMLODIPINO                         /00972401/ [Concomitant]
     Indication: Essential hypertension
     Dosage: UNK
     Route: 048
     Dates: start: 20180302, end: 20210823
  3. SPIRONOLACTONE [Concomitant]
     Active Substance: SPIRONOLACTONE
     Indication: Ascites
     Dosage: UNK
     Route: 048
     Dates: start: 20210802, end: 20210819

REACTIONS (4)
  - Hyponatraemia [Recovered/Resolved]
  - Hypomagnesaemia [Recovered/Resolved]
  - Acute kidney injury [Recovered/Resolved]
  - Hypotension [Recovered/Resolved]

NARRATIVE: CASE EVENT DATE: 20210819
